FAERS Safety Report 6232227-0 (Version None)
Quarter: 2009Q2

REPORT INFORMATION
  Report Type: 
  Country: None (occurrence: None)
  Receive Date: 20090616
  Receipt Date: 20090616
  Transmission Date: 20091009
  Serious: No
  Sender: FDA-Public Use
  Company Number: None

PATIENT
  Sex: Female
  Weight: 90.7194 kg

DRUGS (3)
  1. CRESTOR [Suspect]
     Indication: CORONARY ARTERY DISEASE
     Dosage: 20MG 3T/WK ORAL
     Route: 048
     Dates: start: 20090201, end: 20090501
  2. CRESTOR [Suspect]
     Indication: HYPERLIPIDAEMIA
     Dosage: 20MG 3T/WK ORAL
     Route: 048
     Dates: start: 20090201, end: 20090501
  3. CRESTOR [Suspect]
     Indication: TYPE 2 DIABETES MELLITUS
     Dosage: 20MG 3T/WK ORAL
     Route: 048
     Dates: start: 20090201, end: 20090501

REACTIONS (3)
  - GAIT DISTURBANCE [None]
  - MIDDLE INSOMNIA [None]
  - MUSCLE SPASMS [None]
